FAERS Safety Report 8483067-3 (Version None)
Quarter: 2012Q3

REPORT INFORMATION
  Report Type: 
  Country: None (occurrence: None)
  Receive Date: 20120702
  Receipt Date: 20120625
  Transmission Date: 20120928
  Serious: Yes (Hospitalization)
  Sender: FDA-Public Use
  Company Number: JP-JNJFOC-20120608131

PATIENT
  Age: 52 Year
  Sex: Female

DRUGS (6)
  1. NORVIR [Concomitant]
     Route: 048
  2. EPZICOM [Concomitant]
     Indication: HIV INFECTION
     Route: 048
     Dates: start: 20090401
  3. EPZICOM [Concomitant]
     Route: 048
     Dates: start: 20070501, end: 20081220
  4. PREZISTA [Suspect]
     Indication: HIV INFECTION
     Route: 048
     Dates: start: 20080228, end: 20091220
  5. PREZISTA [Suspect]
     Route: 048
     Dates: start: 20100109
  6. NORVIR [Concomitant]
     Indication: HIV INFECTION
     Route: 048
     Dates: start: 20080228, end: 20091220

REACTIONS (4)
  - VIITH NERVE PARALYSIS [None]
  - HEADACHE [None]
  - WRONG TECHNIQUE IN DRUG USAGE PROCESS [None]
  - DRUG INEFFECTIVE [None]
